FAERS Safety Report 14583818 (Version 6)
Quarter: 2019Q4

REPORT INFORMATION
  Report Type: Report from Study
  Country: CA (occurrence: CA)
  Receive Date: 20180228
  Receipt Date: 20191209
  Transmission Date: 20200122
  Serious: Yes (Other)
  Sender: FDA-Public Use
  Company Number: CA-BRISTOL-MYERS SQUIBB COMPANY-BMS-2018-014832

PATIENT
  Age: 49 Year
  Sex: Female

DRUGS (2)
  1. ABATACEPT [Suspect]
     Active Substance: ABATACEPT
     Indication: RHEUMATOID ARTHRITIS
     Dosage: 750 MG, Q4WK
     Route: 042
     Dates: start: 20120222
  2. ABATACEPT [Suspect]
     Active Substance: ABATACEPT
     Indication: PRODUCT USED FOR UNKNOWN INDICATION
     Dosage: 500 MILLIGRAM, Q4WK
     Route: 042
     Dates: start: 20120222

REACTIONS (11)
  - Gastric disorder [Unknown]
  - Pharyngitis [Recovering/Resolving]
  - Mole excision [Unknown]
  - Helicobacter infection [Unknown]
  - Lower respiratory tract infection [Recovered/Resolved]
  - Sinusitis [Recovering/Resolving]
  - Gastrointestinal disorder [Unknown]
  - Gastrointestinal infection [Recovering/Resolving]
  - Irritable bowel syndrome [Unknown]
  - Malaise [Unknown]
  - Weight decreased [Recovered/Resolved]

NARRATIVE: CASE EVENT DATE: 20180125
